FAERS Safety Report 8454791-3 (Version None)
Quarter: 2012Q2

REPORT INFORMATION
  Report Type: 
  Country: None (occurrence: None)
  Receive Date: 20120621
  Receipt Date: 20120615
  Transmission Date: 20120825
  Serious: Yes (Death)
  Sender: FDA-Public Use
  Company Number: GB-JNJFOC-20120607607

PATIENT
  Age: 43 Year
  Sex: Female

DRUGS (5)
  1. XENICAL [Concomitant]
     Indication: OBESITY
     Route: 048
     Dates: end: 20120106
  2. DILTIAZEM HCL [Concomitant]
     Indication: ANAL FISSURE
     Route: 065
     Dates: end: 20120106
  3. RISPERIDONE [Suspect]
     Indication: SCHIZOPHRENIA
     Route: 048
     Dates: start: 20120105
  4. MIRTAZAPINE [Concomitant]
     Indication: DEPRESSION
     Route: 048
     Dates: end: 20120106
  5. RISPERDAL CONSTA [Suspect]
     Indication: SCHIZOPHRENIA
     Route: 030
     Dates: end: 20120104

REACTIONS (1)
  - DEATH [None]
